FAERS Safety Report 8042694-8 (Version None)
Quarter: 2011Q4

REPORT INFORMATION
  Report Type: 
  Country: None (occurrence: None)
  Receive Date: 20111209
  Receipt Date: 20111111
  Transmission Date: 20120403
  Serious: Yes (Other)
  Sender: FDA-Public Use
  Company Number: 2011SP042586

PATIENT
  Age: 69 Year
  Sex: Female

DRUGS (3)
  1. VICTRELIS [Suspect]
     Indication: HEPATITIS C
     Dosage: 4 DF;TID;PO
     Route: 048
     Dates: start: 20110809, end: 20110905
  2. RIBAVIRIN [Suspect]
     Indication: PRODUCT USED FOR UNKNOWN INDICATION
     Dosage: 5 DF;QD;PO
     Route: 048
     Dates: start: 20110725, end: 20110906
  3. PEG-INTRON [Suspect]
     Indication: PRODUCT USED FOR UNKNOWN INDICATION
     Dosage: QW;SC
     Route: 058
     Dates: start: 20110725, end: 20110915

REACTIONS (3)
  - ANAEMIA [None]
  - STOMATITIS [None]
  - KIDNEY INFECTION [None]
